FAERS Safety Report 17889421 (Version 4)
Quarter: 2021Q3

REPORT INFORMATION
  Report Type: Spontaneous
  Country: US (occurrence: US)
  Receive Date: 20200612
  Receipt Date: 20210924
  Transmission Date: 20211014
  Serious: Yes (Other)
  Sender: FDA-Public Use
  Company Number: US-PFIZER INC-2020229380

PATIENT
  Age: 62 Year
  Sex: Female

DRUGS (4)
  1. IBRANCE [Suspect]
     Active Substance: PALBOCICLIB
     Dosage: 125 MG
     Dates: start: 20200429
  2. ANASTROZOLE. [Concomitant]
     Active Substance: ANASTROZOLE
     Dosage: UNK
  3. IBRANCE [Suspect]
     Active Substance: PALBOCICLIB
     Dosage: 125 MG
     Dates: start: 20200416
  4. IBRANCE [Suspect]
     Active Substance: PALBOCICLIB
     Dosage: 125 MG
     Dates: start: 20200401, end: 202004

REACTIONS (13)
  - Genital swelling [Unknown]
  - Cough [Unknown]
  - Gastric disorder [Unknown]
  - Gastric ulcer [Unknown]
  - Diarrhoea [Recovered/Resolved]
  - Swelling [Unknown]
  - Nausea [Unknown]
  - Irritable bowel syndrome [Unknown]
  - Rhinorrhoea [Unknown]
  - Abdominal pain upper [Unknown]
  - Insomnia [Unknown]
  - Tongue ulceration [Unknown]
  - Fatigue [Unknown]

NARRATIVE: CASE EVENT DATE: 2020
